FAERS Safety Report 14966774 (Version 1)
Quarter: 2018Q2

REPORT INFORMATION
  Report Type: Report from Study
  Country: MY (occurrence: MY)
  Receive Date: 20180604
  Receipt Date: 20180604
  Transmission Date: 20180711
  Serious: No
  Sender: FDA-Public Use
  Company Number: MY-CHEPLA-C20170493

PATIENT

DRUGS (1)
  1. ORLISTAT. [Suspect]
     Active Substance: ORLISTAT
     Indication: OBESITY

REACTIONS (5)
  - Rectal discharge [Unknown]
  - Defaecation urgency [Unknown]
  - Flatulence [Unknown]
  - Steatorrhoea [Unknown]
  - Frequent bowel movements [Unknown]
